FAERS Safety Report 9349622 (Version 1)
Quarter: 2013Q2

REPORT INFORMATION
  Report Type: Report from Study
  Country: CA (occurrence: CA)
  Receive Date: 20130614
  Receipt Date: 20130614
  Transmission Date: 20140414
  Serious: Yes (Hospitalization, Other)
  Sender: FDA-Public Use
  Company Number: CA-ROCHE-1236736

PATIENT
  Age: 53 Year
  Sex: Female

DRUGS (3)
  1. XELODA [Suspect]
     Indication: BREAST CANCER METASTATIC
     Route: 065
  2. XELODA [Suspect]
     Route: 048
     Dates: start: 201203
  3. WARFARIN [Concomitant]

REACTIONS (2)
  - Disease progression [Not Recovered/Not Resolved]
  - Pulmonary oedema [Unknown]
